FAERS Safety Report 4922600-2 (Version None)
Quarter: 2006Q1

REPORT INFORMATION
  Report Type: 
  Country: None (occurrence: None)
  Receive Date: 20060224
  Receipt Date: 20060216
  Transmission Date: 20060701
  Serious: Yes (Other)
  Sender: FDA-Public Use
  Company Number: CS-GLAXOSMITHKLINE-B0412760A

PATIENT
  Age: 28 Year
  Sex: Female

DRUGS (2)
  1. PAROXETINE HCL [Suspect]
     Indication: OBSESSIVE-COMPULSIVE DISORDER
     Dosage: 20MG SEE DOSAGE TEXT
     Route: 065
     Dates: start: 20051017, end: 20051206
  2. CLONAZEPAM [Concomitant]

REACTIONS (1)
  - DERMATITIS BULLOUS [None]
